FAERS Safety Report 5585181-9 (Version None)
Quarter: 2008Q1

REPORT INFORMATION
  Report Type: 
  Country: None (occurrence: None)
  Receive Date: 20080109
  Receipt Date: 20080102
  Transmission Date: 20080703
  Serious: Yes (Hospitalization)
  Sender: FDA-Public Use
  Company Number: PHEH2008US00453

PATIENT
  Sex: Male

DRUGS (5)
  1. COMTAN [Suspect]
     Indication: PARKINSON'S DISEASE
  2. MIRAPEX [Concomitant]
  3. SINEMET CR [Concomitant]
  4. ELDEPRYL [Concomitant]
  5. NEURONTIN [Concomitant]

REACTIONS (2)
  - CARDIAC DISORDER [None]
  - URINE COLOUR ABNORMAL [None]
